FAERS Safety Report 9344037 (Version 1)
Quarter: 2013Q2

REPORT INFORMATION
  Report Type: Spontaneous
  Country: DK (occurrence: DK)
  Receive Date: 20130612
  Receipt Date: 20130612
  Transmission Date: 20140414
  Serious: Yes (Other)
  Sender: FDA-Public Use
  Company Number: DK-PFIZER INC-2013173303

PATIENT
  Age: 71 Year
  Sex: Female

DRUGS (1)
  1. ZARATOR [Suspect]
     Dosage: 10 MG, UNK
     Route: 048

REACTIONS (5)
  - Haemorrhage [Unknown]
  - Hypersensitivity [Unknown]
  - Flatulence [Unknown]
  - Constipation [Unknown]
  - Diarrhoea [Unknown]
